FAERS Safety Report 5746010-3 (Version None)
Quarter: 2008Q2

REPORT INFORMATION
  Report Type: 
  Country: None (occurrence: None)
  Receive Date: 20080522
  Receipt Date: 20080515
  Transmission Date: 20081010
  Serious: Yes (Life-Threatening, Hospitalization)
  Sender: FDA-Public Use
  Company Number: GB-RANBAXY-2008RR-15253

PATIENT

DRUGS (9)
  1. AMILORIDE HCL AND HYDROCHLOROTHIAZIDE [Suspect]
     Indication: OEDEMA
     Dosage: 10 MG, QD
     Dates: end: 20080414
  2. BISOPROLOL FUMARATE [Suspect]
     Dosage: 10 MG, QD
     Dates: end: 20080414
  3. DIGOXIN [Suspect]
     Dosage: 62.5 MG, QD
     Dates: end: 20080414
  4. RAMIPRIL [Suspect]
     Indication: CARDIAC FAILURE CONGESTIVE
     Dosage: 3.75 MG, QD
     Dates: end: 20080414
  5. RAMIPRIL [Suspect]
     Indication: HYPERTENSION
  6. SPIRONOLACTONE [Suspect]
     Indication: OEDEMA
     Dosage: 25 MG, QD
     Dates: start: 20080325, end: 20080414
  7. BUMETANIDE [Concomitant]
     Indication: OEDEMA
     Dosage: 2 MG, QD
     Route: 048
     Dates: end: 20080414
  8. GABAPENTIN [Concomitant]
     Dosage: 300 MG, TID
     Route: 048
     Dates: end: 20080414
  9. WARFARIN SODIUM [Concomitant]
     Indication: ATRIAL FIBRILLATION
     Dosage: UNK
     Route: 048
     Dates: end: 20080414

REACTIONS (5)
  - ATRIOVENTRICULAR BLOCK COMPLETE [None]
  - BLOOD POTASSIUM INCREASED [None]
  - BLOOD PRESSURE DECREASED [None]
  - RENAL FAILURE ACUTE [None]
  - SYNCOPE [None]
